FAERS Safety Report 13165966 (Version 1)
Quarter: 2017Q1

REPORT INFORMATION
  Report Type: Spontaneous
  Country: US (occurrence: US)
  Receive Date: 20170127
  Receipt Date: 20170127
  Transmission Date: 20170428
  Serious: Yes (Hospitalization)
  Sender: FDA-Public Use
  Company Number: None

PATIENT
  Age: 70 Year
  Sex: Male
  Weight: 115 kg

DRUGS (1)
  1. PREDNISONE. [Suspect]
     Active Substance: PREDNISONE
     Indication: COMPUTERISED TOMOGRAM CORONARY ARTERY
     Route: 048
     Dates: start: 20160920, end: 20160922

REACTIONS (1)
  - Delusion [None]

NARRATIVE: CASE EVENT DATE: 20160922
